FAERS Safety Report 4954253-1 (Version None)
Quarter: 2006Q1

REPORT INFORMATION
  Report Type: 
  Country: None (occurrence: None)
  Receive Date: 20060327
  Receipt Date: 20050304
  Transmission Date: 20060701
  Serious: Yes (Hospitalization, Other)
  Sender: FDA-Public Use
  Company Number: US-MERCK-0503USA00989

PATIENT
  Age: 50 Year
  Sex: Female
  Weight: 92 kg

DRUGS (8)
  1. VIOXX [Suspect]
     Indication: OSTEOARTHRITIS
     Route: 048
     Dates: start: 20000320, end: 20040929
  2. VIOXX [Suspect]
     Route: 048
     Dates: start: 20000320, end: 20040929
  3. VIOXX [Suspect]
     Route: 048
  4. ZYRTEC [Concomitant]
     Route: 065
  5. NORVASC [Concomitant]
     Route: 065
  6. DIOVAN [Concomitant]
     Route: 065
  7. LO/OVRAL [Concomitant]
     Route: 065
  8. MIACALCIN [Concomitant]
     Route: 065

REACTIONS (14)
  - ARTHROPATHY [None]
  - BLEEDING TIME ABNORMAL [None]
  - CARDIAC DISORDER [None]
  - CEREBROVASCULAR ACCIDENT [None]
  - COMPLEX PARTIAL SEIZURES [None]
  - CONVULSION [None]
  - ISCHAEMIC STROKE [None]
  - OSTEOPOROSIS [None]
  - OVERDOSE [None]
  - OVERWEIGHT [None]
  - SYNCOPE [None]
  - TONGUE BITING [None]
  - TRANSIENT ISCHAEMIC ATTACK [None]
  - VERTIGO [None]
